FAERS Safety Report 6916499-2 (Version None)
Quarter: 2010Q3

REPORT INFORMATION
  Report Type: 
  Country: None (occurrence: None)
  Receive Date: 20100810
  Receipt Date: 20100727
  Transmission Date: 20110219
  Serious: Yes (Hospitalization, Other)
  Sender: FDA-Public Use
  Company Number: PHHY2010DE52170

PATIENT
  Sex: Female

DRUGS (2)
  1. ENCEPUR ADULT (NVD) [Suspect]
     Indication: IMMUNISATION
     Dates: start: 20100701, end: 20100701
  2. DICLOFENAC [Suspect]
     Indication: SPINAL DISORDER

REACTIONS (3)
  - C-REACTIVE PROTEIN INCREASED [None]
  - SWELLING FACE [None]
  - WHITE BLOOD CELL COUNT INCREASED [None]
